FAERS Safety Report 9159894 (Version 1)
Quarter: 2013Q1

REPORT INFORMATION
  Report Type: Spontaneous
  Country: ZA (occurrence: ZA)
  Receive Date: 20130313
  Receipt Date: 20130313
  Transmission Date: 20140127
  Serious: Yes (Other)
  Sender: FDA-Public Use
  Company Number: ZA-PFIZER INC-2013081318

PATIENT
  Sex: Male

DRUGS (4)
  1. SUTENT [Suspect]
     Dosage: 50 MG, UNK
  2. SUTENT [Suspect]
     Dosage: 37.5 MG, UNK
  3. SUTENT [Suspect]
     Dosage: 25 MG, UNK
  4. ISORDIL [Concomitant]
     Dosage: 1X/DAY AND 2X/WEEK AT NIGHT

REACTIONS (5)
  - Dyspnoea [Unknown]
  - Ejection fraction decreased [Unknown]
  - Dyspnoea paroxysmal nocturnal [Unknown]
  - Palmar-plantar erythrodysaesthesia syndrome [Unknown]
  - Sleep disorder [Unknown]
